FAERS Safety Report 4286570-5 (Version None)
Quarter: 2004Q1

REPORT INFORMATION
  Report Type: 
  Country: None (occurrence: None)
  Receive Date: 20040204
  Receipt Date: 20040127
  Transmission Date: 20041129
  Serious: Yes (Other)
  Sender: FDA-Public Use
  Company Number: 200410651US

PATIENT
  Sex: Male

DRUGS (3)
  1. LANTUS [Suspect]
     Indication: DIABETES MELLITUS
     Dosage: 40 U HS
  2. LASIX [Concomitant]
  3. METOPROLOL SUCCINATE (TOPROL XL) [Concomitant]

REACTIONS (5)
  - BLOOD PRESSURE SYSTOLIC DECREASED [None]
  - DRY SKIN [None]
  - HEART RATE INCREASED [None]
  - MEDICATION ERROR [None]
  - RENAL FAILURE ACUTE [None]
